FAERS Safety Report 5794490-X (Version None)
Quarter: 2008Q2

REPORT INFORMATION
  Report Type: 
  Country: None (occurrence: None)
  Receive Date: 20080630
  Receipt Date: 20080619
  Transmission Date: 20081010
  Serious: Yes (Hospitalization)
  Sender: FDA-Public Use
  Company Number: US-JNJFOC-20080502934

PATIENT
  Sex: Female
  Weight: 70.31 kg

DRUGS (4)
  1. DURAGESIC-100 [Suspect]
     Route: 062
  2. DURAGESIC-100 [Suspect]
     Indication: FIBROMYALGIA
     Route: 062
  3. OXYCONTIN [Suspect]
     Indication: PAIN
     Route: 048
  4. VICODIN [Concomitant]
     Indication: PAIN
     Dosage: 5/500 MG AS NEEDED
     Route: 048

REACTIONS (2)
  - DERMATITIS CONTACT [None]
  - SPINAL FRACTURE [None]
